FAERS Safety Report 10092993 (Version 1)
Quarter: 2014Q2

REPORT INFORMATION
  Report Type: Spontaneous
  Country: US (occurrence: US)
  Receive Date: 20140421
  Receipt Date: 20140421
  Transmission Date: 20141212
  Serious: No
  Sender: FDA-Public Use
  Company Number: US-SA-2013SA097780

PATIENT
  Age: 73 Year
  Sex: Male

DRUGS (1)
  1. ALLEGRA [Suspect]
     Dosage: FREQUENCY: 2 DOSE ONE AT 8;30 AM AND  ONE TABLET AT 2:00 PM.
     Route: 048
     Dates: start: 20130923, end: 20130923

REACTIONS (1)
  - Wrong drug administered [Unknown]
